FAERS Safety Report 7637275-1 (Version None)
Quarter: 2011Q3

REPORT INFORMATION
  Report Type: 
  Country: None (occurrence: None)
  Receive Date: 20110726
  Receipt Date: 20110715
  Transmission Date: 20111222
  Serious: Yes (Other)
  Sender: FDA-Public Use
  Company Number: US-MYLANLABS-2011S1014847

PATIENT
  Age: 58 Year
  Sex: Female
  Weight: 69.85 kg

DRUGS (11)
  1. FENTANYL-100 [Suspect]
     Dosage: Q72H
     Route: 062
     Dates: start: 20110603, end: 20110609
  2. ADDERALL 10 [Concomitant]
  3. LORAZEPAM [Concomitant]
  4. TRIAMTERENE AND HYDROCHLOROTHIAZIDE [Concomitant]
  5. FENTANYL-100 [Suspect]
     Dosage: Q72H
     Route: 062
     Dates: start: 20110609, end: 20110613
  6. DIAZEPAM [Concomitant]
  7. SYNTHROID [Concomitant]
  8. FENTANYL-100 [Suspect]
     Indication: BACK PAIN
     Dosage: Q72H
     Route: 062
     Dates: start: 20110524, end: 20110603
  9. LIDODERM [Concomitant]
  10. OXYCONTIN [Concomitant]
  11. FENTANYL-100 [Suspect]
     Dosage: Q72H
     Route: 062
     Dates: start: 20110609, end: 20110613

REACTIONS (6)
  - OESOPHAGEAL RUPTURE [None]
  - VOMITING PROJECTILE [None]
  - NAUSEA [None]
  - GASTROENTERITIS [None]
  - PARAESTHESIA [None]
  - CARPAL TUNNEL SYNDROME [None]
